FAERS Safety Report 4590819-9 (Version None)
Quarter: 2005Q1

REPORT INFORMATION
  Report Type: 
  Country: None (occurrence: None)
  Receive Date: 20050222
  Receipt Date: 20050222
  Transmission Date: 20050727
  Serious: Yes (Other)
  Sender: FDA-Public Use
  Company Number: None

PATIENT
  Sex: Male
  Weight: 69.2 kg

DRUGS (3)
  1. DAUNORUBICIN HCL [Suspect]
     Indication: ACUTE MYELOID LEUKAEMIA
     Dosage: 60 MG/M2/DAY BY IVP
     Route: 042
     Dates: start: 20050203, end: 20050204
  2. DAUNORUBICIN HCL [Suspect]
     Indication: ACUTE MYELOID LEUKAEMIA
     Dosage: 60 MG/M2/DAY BY IVP
     Route: 042
     Dates: start: 20050120
  3. CYTARABINE [Suspect]
     Dosage: 100 MG/M2/DAY BY CIV ON DAYS DAYS1-7
     Route: 042

REACTIONS (8)
  - ATRIAL FIBRILLATION [None]
  - HAEMATOCHEZIA [None]
  - HAEMATOCRIT DECREASED [None]
  - HAEMOGLOBIN DECREASED [None]
  - HAEMORRHAGE [None]
  - HYPOTENSION [None]
  - PYREXIA [None]
  - SINUS TACHYCARDIA [None]
